FAERS Safety Report 13163135 (Version 3)
Quarter: 2017Q1

REPORT INFORMATION
  Report Type: Spontaneous
  Country: JP (occurrence: JP)
  Receive Date: 20170130
  Receipt Date: 20170308
  Transmission Date: 20170428
  Serious: Yes (Other)
  Sender: FDA-Public Use
  Company Number: JP-PFIZER INC-2017036478

PATIENT
  Age: 74 Year
  Sex: Male
  Weight: 72.5 kg

DRUGS (9)
  1. BACTRAMIN [Suspect]
     Active Substance: SULFAMETHOXAZOLE\TRIMETHOPRIM
     Dosage: 1 G, 2X/DAY
  2. VFEND [Suspect]
     Active Substance: VORICONAZOLE
     Indication: CRYPTOCOCCOSIS
     Dosage: 100 MG, 2X/DAY
     Route: 048
     Dates: start: 20120613
  3. VORICONAZOLE. [Suspect]
     Active Substance: VORICONAZOLE
     Indication: PROPHYLAXIS
     Dosage: 200 MG, 2X/DAY
     Dates: end: 20170125
  4. LANSOPRAZOLE. [Suspect]
     Active Substance: LANSOPRAZOLE
     Dosage: 30 G, 1X/DAY
  5. SYMMETREL [Suspect]
     Active Substance: AMANTADINE HYDROCHLORIDE
     Dosage: 50 G, 2X/DAY
  6. PREDNISOLONE. [Suspect]
     Active Substance: PREDNISOLONE
     Dosage: 5 MG, 2X/DAY
  7. ASPIRIN. [Suspect]
     Active Substance: ASPIRIN
     Dosage: 100 G, 1X/DAY
  8. MUCODYNE [Suspect]
     Active Substance: CARBOCYSTEINE
     Dosage: 500 G, 3X/DAY
  9. VORICONAZOLE. [Suspect]
     Active Substance: VORICONAZOLE
     Dosage: 100 MG, 2X/DAY
     Dates: start: 20170125

REACTIONS (5)
  - Product use issue [Unknown]
  - Drug level decreased [Unknown]
  - Cerebral infarction [Unknown]
  - Pneumonia [Unknown]
  - Hepatic function abnormal [Unknown]

NARRATIVE: CASE EVENT DATE: 201612
